FAERS Safety Report 9407747 (Version 1)
Quarter: 2013Q3

REPORT INFORMATION
  Report Type: Spontaneous
  Country: US (occurrence: US)
  Receive Date: 20130718
  Receipt Date: 20130718
  Transmission Date: 20140515
  Serious: No
  Sender: FDA-Public Use
  Company Number: US-PFIZER INC-2013210055

PATIENT
  Age: 63 Year
  Sex: Female
  Weight: 65.31 kg

DRUGS (14)
  1. GABAPENTIN [Suspect]
     Indication: FIBROMYALGIA
     Dosage: 600 MG, 4X/DAY
     Route: 048
     Dates: start: 201306, end: 201307
  2. ATIVAN [Concomitant]
     Dosage: 0.5 MG, UNK
  3. PRILOSEC [Concomitant]
     Dosage: 20 MG, 2X/DAY
  4. PROZAC [Concomitant]
     Dosage: 60 MG, 1X/DAY
  5. SOMA [Concomitant]
     Dosage: 700MG (BY TAKING 2 TABLET OF 350MG) ONCE A DAY
  6. LASIX [Concomitant]
     Dosage: 40 MG, 1X/DAY
  7. ASPIRIN [Concomitant]
     Dosage: 81 MG, 1X/DAY
  8. CRESTOR [Concomitant]
     Dosage: 40 MG, 1X/DAY
  9. IMITREX [Concomitant]
     Indication: MIGRAINE
     Dosage: UNK, AS NEEDED
  10. VITAMIN B12 [Concomitant]
     Dosage: UNK, MONTHLY
     Route: 058
  11. ACTONEL [Concomitant]
     Dosage: 150 MG, MONTHLY
  12. FENOFIBRATE [Concomitant]
     Dosage: 150 MG, 1X/DAY
  13. ZANAFLEX [Concomitant]
     Dosage: 4 MG, 1X/DAY
  14. HYDROCODONE [Concomitant]
     Dosage: UNK, 2X/DAY

REACTIONS (3)
  - Off label use [Unknown]
  - Drug ineffective for unapproved indication [Unknown]
  - Nausea [Unknown]
